FAERS Safety Report 7940122-1 (Version None)
Quarter: 2011Q4

REPORT INFORMATION
  Report Type: 
  Country: None (occurrence: None)
  Receive Date: 20111125
  Receipt Date: 20111114
  Transmission Date: 20120403
  Serious: Yes (Other)
  Sender: FDA-Public Use
  Company Number: US-ELI_LILLY_AND_COMPANY-US201003006823

PATIENT
  Sex: Female

DRUGS (3)
  1. FORTEO [Suspect]
     Dosage: 20 UG, QD
     Dates: end: 20111110
  2. FORTEO [Suspect]
     Indication: OSTEOPOROSIS
     Dosage: 20 UG, DAILY (1/D)
     Dates: start: 20100101
  3. FORTEO [Suspect]
     Dosage: 20 UG, DAILY (1/D)

REACTIONS (9)
  - CHOKING [None]
  - TERMINAL INSOMNIA [None]
  - FATIGUE [None]
  - NERVOUSNESS [None]
  - LUNG OPERATION [None]
  - SPINAL DEFORMITY [None]
  - BIOPSY [None]
  - SLEEP DISORDER [None]
  - HEADACHE [None]
